FAERS Safety Report 8332596-1 (Version None)
Quarter: 2012Q1

REPORT INFORMATION
  Report Type: 
  Country: None (occurrence: None)
  Receive Date: 20120327
  Receipt Date: 20100510
  Transmission Date: 20120608
  Serious: Yes (Disabling, Other)
  Sender: FDA-Public Use
  Company Number: PHEH2009US03596

PATIENT
  Age: 36 Year
  Sex: Female
  Weight: 72 kg

DRUGS (2)
  1. GLEEVEC [Suspect]
     Indication: CHRONIC MYELOID LEUKAEMIA
     Dosage: 400 MG, QD, ORAL; 400 TO 600 MG PER DAY, ORAL
     Route: 048
     Dates: start: 20030101, end: 20050101
  2. GLEEVEC [Suspect]
     Indication: CHRONIC MYELOID LEUKAEMIA
     Dosage: 400 MG, QD, ORAL; 400 TO 600 MG PER DAY, ORAL
     Route: 048
     Dates: start: 20081101

REACTIONS (4)
  - DEAFNESS NEUROSENSORY [None]
  - BLAST CRISIS IN MYELOGENOUS LEUKAEMIA [None]
  - VERTIGO [None]
  - TINNITUS [None]
